FAERS Safety Report 16110229 (Version 1)
Quarter: 2019Q1

REPORT INFORMATION
  Report Type: Spontaneous
  Country: KZ (occurrence: KZ)
  Receive Date: 20190325
  Receipt Date: 20190325
  Transmission Date: 20190418
  Serious: Yes (Other)
  Sender: FDA-Public Use
  Company Number: KZ-IPSEN BIOPHARMACEUTICALS, INC.-2019-04301

PATIENT
  Age: 27 Year
  Sex: Female

DRUGS (4)
  1. DYSPORT [Suspect]
     Active Substance: ABOBOTULINUMTOXINA
     Indication: SKIN WRINKLING
     Dosage: 38 UNITS (PROCERUS - 12U, CORRUGATOR DEXTER AT SINISTER - 12 U FOR EVERY MUSCLE, PER 1 SITE FOR EACH
     Route: 058
     Dates: start: 20190213, end: 20190213
  2. DYSPORT [Suspect]
     Active Substance: ABOBOTULINUMTOXINA
     Indication: SKIN WRINKLING
  3. DYSPORT [Suspect]
     Active Substance: ABOBOTULINUMTOXINA
     Indication: OFF LABEL USE
  4. DYSPORT [Suspect]
     Active Substance: ABOBOTULINUMTOXINA
     Indication: SKIN WRINKLING

REACTIONS (6)
  - Syncope [Unknown]
  - Headache [Unknown]
  - Incorrect product administration duration [Unknown]
  - Vertigo [Unknown]
  - Nausea [Unknown]
  - Off label use [Unknown]

NARRATIVE: CASE EVENT DATE: 20190213
